FAERS Safety Report 11644017 (Version 1)
Quarter: 2015Q4

REPORT INFORMATION
  Report Type: Spontaneous
  Country: US (occurrence: US)
  Receive Date: 20151020
  Receipt Date: 20151020
  Transmission Date: 20160304
  Serious: Yes (Other)
  Sender: FDA-Public Use
  Company Number: US-ASCEND THERAPEUTICS-1043180

PATIENT
  Age: 57 Year
  Sex: Female

DRUGS (2)
  1. ESTROGEL [Suspect]
     Active Substance: ESTRADIOL
     Route: 062
     Dates: start: 20130801
  2. PROVERA [Concomitant]
     Active Substance: MEDROXYPROGESTERONE ACETATE
     Route: 065

REACTIONS (1)
  - Endometrial hyperplasia [Not Recovered/Not Resolved]

NARRATIVE: CASE EVENT DATE: 20150801
